FAERS Safety Report 5953348-3 (Version None)
Quarter: 2008Q4

REPORT INFORMATION
  Report Type: 
  Country: None (occurrence: None)
  Receive Date: 20081114
  Receipt Date: 20081107
  Transmission Date: 20090506
  Serious: Yes (Hospitalization)
  Sender: FDA-Public Use
  Company Number: NL-ABBOTT-08P-114-0486275-00

PATIENT
  Sex: Female

DRUGS (4)
  1. HUMIRA [Suspect]
     Indication: CROHN'S DISEASE
     Route: 058
     Dates: start: 20081021, end: 20081103
  2. HUMIRA [Suspect]
     Indication: ANAL FISTULA
  3. CIPROFLOXACIN (BLINDED) [Concomitant]
     Indication: ANAL FISTULA
     Route: 048
     Dates: start: 20081021, end: 20081103
  4. CIPROFLOXACIN (BLINDED) [Concomitant]
     Indication: CROHN'S DISEASE

REACTIONS (3)
  - CHILLS [None]
  - PYREXIA [None]
  - SEPSIS [None]
